FAERS Safety Report 4341777-3 (Version None)
Quarter: 2004Q2

REPORT INFORMATION
  Report Type: 
  Country: None (occurrence: None)
  Receive Date: 20040415
  Receipt Date: 20040329
  Transmission Date: 20050107
  Serious: Yes (Other)
  Sender: FDA-Public Use
  Company Number: USA040363297

PATIENT
  Age: 14 Year
  Sex: Male
  Weight: 82 kg

DRUGS (2)
  1. HUMALOG [Suspect]
     Indication: DIABETES MELLITUS
     Dosage: 14 U AS NEEDED
  2. HUMULIN N [Suspect]
     Indication: DIABETES MELLITUS
     Dosage: 28 U/1 IN THE MORNING
     Dates: start: 19910101

REACTIONS (1)
  - RENAL IMPAIRMENT [None]
